FAERS Safety Report 6381115-8 (Version None)
Quarter: 2009Q3

REPORT INFORMATION
  Report Type: 
  Country: None (occurrence: None)
  Receive Date: 20090929
  Receipt Date: 20090921
  Transmission Date: 20100115
  Serious: No
  Sender: FDA-Public Use
  Company Number: US-B.I. PHARMACEUTICALS,INC./RIDGEFIELD-2009-BP-11081BP

PATIENT
  Age: 63 Year
  Sex: Male

DRUGS (1)
  1. FLOMAX [Suspect]

REACTIONS (4)
  - DIZZINESS [None]
  - DRUG INTERACTION [None]
  - HEADACHE [None]
  - SOMNOLENCE [None]
